FAERS Safety Report 7488908-4 (Version None)
Quarter: 2011Q2

REPORT INFORMATION
  Report Type: 
  Country: None (occurrence: None)
  Receive Date: 20110518
  Receipt Date: 20110506
  Transmission Date: 20111010
  Serious: Yes (Other)
  Sender: FDA-Public Use
  Company Number: DE-UCBSA-032453

PATIENT
  Age: 12 Year

DRUGS (4)
  1. VIMPAT [Suspect]
     Dosage: 13.3 MG/KG
  2. PHENYTOIN [Concomitant]
     Indication: EPILEPSY
  3. VIMPAT [Suspect]
  4. VIMPAT [Suspect]
     Indication: EPILEPSY
     Dosage: UNKNOWN

REACTIONS (2)
  - CONVULSION [None]
  - TREATMENT NONCOMPLIANCE [None]
